FAERS Safety Report 9974003 (Version 1)
Quarter: 2014Q1

REPORT INFORMATION
  Report Type: Report from Study
  Country: US (occurrence: US)
  Receive Date: 20140306
  Receipt Date: 20140306
  Transmission Date: 20141002
  Serious: No
  Sender: FDA-Public Use
  Company Number: US-ABBVIE-13P-163-1154902-00

PATIENT
  Sex: Female

DRUGS (1)
  1. HUMIRA [Suspect]
     Indication: RHEUMATOID ARTHRITIS
     Route: 058
     Dates: start: 2008

REACTIONS (5)
  - Scoliosis [Unknown]
  - Spinal column stenosis [Unknown]
  - Intervertebral disc compression [Unknown]
  - Mobility decreased [Unknown]
  - Nerve root compression [Unknown]
